FAERS Safety Report 5361543-X (Version None)
Quarter: 2007Q2

REPORT INFORMATION
  Report Type: 
  Country: None (occurrence: None)
  Receive Date: 20070619
  Receipt Date: 20070612
  Transmission Date: 20071010
  Serious: Yes (Other)
  Sender: FDA-Public Use
  Company Number: PHBS2007JP06135

PATIENT
  Age: 75 Year
  Sex: Female
  Weight: 64 kg

DRUGS (4)
  1. ZOMETA [Suspect]
     Indication: METASTASES TO BONE
     Route: 042
     Dates: start: 20060914, end: 20070301
  2. AREDIA [Suspect]
     Indication: METASTASES TO BONE
     Dosage: UNK, UNK
     Route: 042
     Dates: start: 20051101, end: 20060817
  3. AROMASIN [Suspect]
     Indication: METASTASES TO BONE
     Route: 048
     Dates: start: 20051026, end: 20060817
  4. TAMOXIFEN CITRATE [Suspect]
     Indication: METASTASES TO BONE
     Dosage: 20 MG/DAY
     Route: 048
     Dates: start: 20060817

REACTIONS (9)
  - BLOOD ALKALINE PHOSPHATASE INCREASED [None]
  - BONE DISORDER [None]
  - DENTAL TREATMENT [None]
  - HAEMOGLOBIN DECREASED [None]
  - ORAL SURGERY [None]
  - OSTEOMYELITIS [None]
  - OSTEONECROSIS [None]
  - RED BLOOD CELL COUNT DECREASED [None]
  - SCINTIGRAPHY [None]
